FAERS Safety Report 9390872 (Version 1)
Quarter: 2013Q3

REPORT INFORMATION
  Report Type: Spontaneous
  Country: BR (occurrence: BR)
  Receive Date: 20130709
  Receipt Date: 20130709
  Transmission Date: 20140515
  Serious: Yes (Other)
  Sender: FDA-Public Use
  Company Number: BR-ASTRAZENECA-2012SE53919

PATIENT
  Age: 56 Year
  Sex: Male

DRUGS (4)
  1. SELOZOK [Suspect]
     Indication: BLOOD PRESSURE ABNORMAL
     Route: 048
     Dates: start: 201011, end: 20120726
  2. SELOZOK [Suspect]
     Indication: BLOOD PRESSURE ABNORMAL
     Route: 048
  3. SELOZOK [Suspect]
     Indication: BLOOD PRESSURE ABNORMAL
     Route: 048
  4. BLOOD PRESSURE TREATMENT [Concomitant]
     Indication: BLOOD PRESSURE ABNORMAL
     Dates: start: 2000

REACTIONS (3)
  - Blood pressure fluctuation [Recovered/Resolved]
  - Tinnitus [Not Recovered/Not Resolved]
  - Drug dose omission [Recovered/Resolved]
